FAERS Safety Report 18481897 (Version 5)
Quarter: 2020Q4

REPORT INFORMATION
  Report Type: Spontaneous
  Country: US (occurrence: US)
  Receive Date: 20201109
  Receipt Date: 20201221
  Transmission Date: 20210114
  Serious: Yes (Hospitalization, Other)
  Sender: FDA-Public Use
  Company Number: US-PFIZER INC-2020437657

PATIENT
  Age: 82 Year
  Sex: Female

DRUGS (1)
  1. IBRANCE [Suspect]
     Active Substance: PALBOCICLIB
     Indication: BREAST CANCER FEMALE
     Dosage: 100 MG
     Dates: end: 20201210

REACTIONS (4)
  - Neoplasm progression [Unknown]
  - Abdominal pain [Recovering/Resolving]
  - Product dose omission in error [Unknown]
  - Abdominal pain upper [Recovering/Resolving]
